FAERS Safety Report 4555642-X (Version None)
Quarter: 2005Q1

REPORT INFORMATION
  Report Type: 
  Country: None (occurrence: None)
  Receive Date: 20050119
  Receipt Date: 20050111
  Transmission Date: 20050727
  Serious: Yes (Other)
  Sender: FDA-Public Use
  Company Number: US-JNJFOC-20050102251

PATIENT
  Sex: Female

DRUGS (2)
  1. DURAGESIC [Suspect]
     Route: 062
     Dates: start: 20041022, end: 20041022
  2. DURAGESIC [Suspect]
     Indication: INTENTIONAL MISUSE
     Route: 062
     Dates: start: 20041022, end: 20041022

REACTIONS (2)
  - OVERDOSE [None]
  - RESPIRATORY ARREST [None]
